FAERS Safety Report 4355074-3 (Version None)
Quarter: 2004Q2

REPORT INFORMATION
  Report Type: 
  Country: None (occurrence: None)
  Receive Date: 20040504
  Receipt Date: 20040414
  Transmission Date: 20050107
  Serious: Yes (Hospitalization)
  Sender: FDA-Public Use
  Company Number: ATO-04-0389

PATIENT
  Age: 76 Year
  Sex: Male

DRUGS (18)
  1. TRISENOX [Suspect]
     Indication: MYELODYSPLASTIC SYNDROME
     Dosage: 23.37 MG (0.3 MG/KG, Q3WK), IVI
     Route: 042
     Dates: start: 20040405, end: 20040407
  2. NITRO PATCH [Concomitant]
  3. OMEPRAZOLE [Concomitant]
  4. LOSARTAN POTASSIUM [Concomitant]
  5. NISOLDIPINE [Concomitant]
  6. ZYRTEC [Concomitant]
  7. TRIAMTERENE [Concomitant]
  8. HYDROCHLOROTHIAZIDE [Concomitant]
  9. ZOCOR [Concomitant]
  10. PROPRANOLOL [Concomitant]
  11. CELEBREX [Concomitant]
  12. MULTI-VITAMIN [Concomitant]
  13. FOLIC ACID [Concomitant]
  14. ASPIRIN [Concomitant]
  15. CELEXA [Concomitant]
  16. CARBIDOPA AND LEVODOPA [Concomitant]
  17. MORPHINE [Concomitant]
  18. NEURONTIN [Concomitant]

REACTIONS (10)
  - BLOOD CREATININE INCREASED [None]
  - CONFUSIONAL STATE [None]
  - DRUG TOXICITY [None]
  - DYSARTHRIA [None]
  - DYSKINESIA [None]
  - EXTRAPYRAMIDAL DISORDER [None]
  - FALL [None]
  - FIBULA FRACTURE [None]
  - MEDICATION ERROR [None]
  - TREATMENT NONCOMPLIANCE [None]
